FAERS Safety Report 9414148 (Version 1)
Quarter: 2013Q3

REPORT INFORMATION
  Report Type: Spontaneous
  Country: US (occurrence: US)
  Receive Date: 20130723
  Receipt Date: 20130723
  Transmission Date: 20140515
  Serious: Yes (Other)
  Sender: FDA-Public Use
  Company Number: US-ELI_LILLY_AND_COMPANY-US201307004896

PATIENT
  Sex: Female

DRUGS (9)
  1. CYMBALTA [Suspect]
     Indication: ARTHRITIS
     Dosage: 30 MG, QD
     Route: 065
     Dates: start: 20130510
  2. CYMBALTA [Suspect]
     Indication: FIBROMYALGIA
     Dosage: 60 MG, QD
     Route: 065
     Dates: end: 20130626
  3. COREG CR [Concomitant]
     Dosage: UNK, QD
     Route: 065
  4. MAXIDE [Concomitant]
     Dosage: 37.5 DF, QD
     Route: 065
  5. METHOTREXAT [Concomitant]
     Dosage: UNK, WEEKLY (1/W)
     Route: 065
  6. CALCIUM [Concomitant]
     Dosage: UNK, UNKNOWN
     Route: 065
  7. VITAMIN C [Concomitant]
     Dosage: UNK, QD
     Route: 065
  8. FOLIC ACID [Concomitant]
     Dosage: UNK, QD
     Route: 065
  9. NEXIUM [Concomitant]
     Dosage: UNK, QD
     Route: 065

REACTIONS (4)
  - Blister [Recovering/Resolving]
  - Gingival blister [Recovering/Resolving]
  - Wound complication [Unknown]
  - Pruritus [Unknown]
